FAERS Safety Report 4822769-4 (Version None)
Quarter: 2005Q4

REPORT INFORMATION
  Report Type: 
  Country: None (occurrence: None)
  Receive Date: 20051104
  Receipt Date: 20051023
  Transmission Date: 20060501
  Serious: Yes (Hospitalization, Other)
  Sender: FDA-Public Use
  Company Number: 2005145614

PATIENT
  Age: 27 Year
  Sex: Male
  Weight: 15.8759 kg

DRUGS (1)
  1. ZYRTEC [Suspect]
     Indication: HYPERSENSITIVITY
     Dosage: (1 IN 1 ), ORAL
     Route: 048
     Dates: start: 20050101

REACTIONS (2)
  - EPIDIDYMITIS [None]
  - INFECTION [None]
